FAERS Safety Report 7632949-0 (Version None)
Quarter: 2011Q3

REPORT INFORMATION
  Report Type: 
  Country: None (occurrence: None)
  Receive Date: 20110725
  Receipt Date: 20101027
  Transmission Date: 20111222
  Serious: Yes (Hospitalization, Other)
  Sender: FDA-Public Use
  Company Number: US-BAYER-200830161NA

PATIENT
  Age: 36 Year
  Sex: Female
  Weight: 81 kg

DRUGS (8)
  1. YAZ [Suspect]
     Indication: ORAL CONTRACEPTION
     Dosage: 1 TAB/DAY
     Route: 048
     Dates: start: 20070722, end: 20070730
  2. YAZ [Suspect]
     Indication: HORMONE REPLACEMENT THERAPY
  3. GAS X [Concomitant]
     Route: 048
  4. MULTI-VITAMINS [Concomitant]
     Dosage: 1 DF (DAILY DOSE), QD, ORAL
     Route: 048
  5. AMBIEN [Concomitant]
     Dosage: 10 MG, PRN
     Route: 048
  6. ASCORBIC ACID [Concomitant]
     Indication: UNEVALUABLE EVENT
     Dosage: UNK UNK, QD
     Dates: start: 20040101
  7. MULTI-VITAMIN [Concomitant]
     Indication: UNEVALUABLE EVENT
     Dosage: UNK UNK, QD
     Dates: start: 20040101
  8. CENTRUM [Concomitant]
     Dosage: 1 DF (DAILY DOSE), QD, ORAL
     Route: 048

REACTIONS (13)
  - ANXIETY [None]
  - UNEVALUABLE EVENT [None]
  - NAUSEA [None]
  - ABDOMINAL PAIN [None]
  - PSYCHOTIC DISORDER [None]
  - HOMICIDAL IDEATION [None]
  - IMPAIRED WORK ABILITY [None]
  - DISTURBANCE IN ATTENTION [None]
  - IRRITABILITY [None]
  - DEPRESSION [None]
  - POOR QUALITY SLEEP [None]
  - ABDOMINAL DISTENSION [None]
  - SUICIDAL IDEATION [None]
